FAERS Safety Report 14010250 (Version 4)
Quarter: 2020Q3

REPORT INFORMATION
  Report Type: Report from Study
  Country: IT (occurrence: IT)
  Receive Date: 20170926
  Receipt Date: 20171113
  Transmission Date: 20201104
  Serious: Yes (Death, Hospitalization)
  Sender: FDA-Public Use
  Company Number: IT-ROCHE-1995785

PATIENT
  Age: 59 Year
  Sex: Male
  Weight: 80 kg

DRUGS (1)
  1. ALECTINIB. [Suspect]
     Active Substance: ALECTINIB
     Indication: NON-SMALL CELL LUNG CANCER
     Route: 048
     Dates: start: 20170915, end: 20170917

REACTIONS (3)
  - Confusional state [Fatal]
  - Myocardial ischaemia [Fatal]
  - Amnesia [Fatal]

NARRATIVE: CASE EVENT DATE: 20170917
